FAERS Safety Report 21086461 (Version 1)
Quarter: 2022Q3

REPORT INFORMATION
  Report Type: Spontaneous
  Country: FR (occurrence: FR)
  Receive Date: 20220715
  Receipt Date: 20220715
  Transmission Date: 20221026
  Serious: Yes (Other)
  Sender: FDA-Public Use
  Company Number: FR-AFSSAPS-SE20220658

PATIENT
  Age: 54 Year
  Sex: Female
  Weight: 62 kg

DRUGS (8)
  1. OXYCODONE [Suspect]
     Active Substance: OXYCODONE
     Indication: Pain
     Dosage: 80 MILLIGRAM, ONCE A DAY
     Route: 065
     Dates: start: 20220405
  2. ACETAMINOPHEN [Suspect]
     Active Substance: ACETAMINOPHEN
     Indication: Pain
     Dosage: 1 GRAM, AS NECESSARY (OCCASIONAL DOSES + SYSTEMATIC DOSES ON D1, D8, D15 AND D22)
     Route: 065
     Dates: start: 202201
  3. BORTEZOMIB [Suspect]
     Active Substance: BORTEZOMIB
     Indication: Plasma cell myeloma
     Dosage: 2.22 MILLIGRAM (2.22 MG ON D1, D4, D8, D11 OF EACH CYCLE, 28-DAY CYCLES)
     Route: 065
     Dates: start: 20220415
  4. DARZALEX [Suspect]
     Active Substance: DARATUMUMAB
     Indication: Plasma cell myeloma
     Dosage: 1800 MILLIGRAM (1800 MG ON D1, D8, D15 AND D22)
     Route: 065
     Dates: start: 20220415, end: 20220506
  5. DEXAMETHASONE [Suspect]
     Active Substance: DEXAMETHASONE
     Indication: Plasma cell myeloma
     Dosage: 40 MILLIGRAM (40 MG ON D1, D8, D15 AND D22)
     Route: 065
     Dates: start: 20220415
  6. METHYLPREDNISOLONE [Suspect]
     Active Substance: METHYLPREDNISOLONE
     Indication: Plasma cell myeloma
     Dosage: 60 MILLIGRAM, ONCE A DAY (OCCASIONAL DOSES + SYSTEMATIC DOSES ON D1, D8, D15 AND D22)
     Route: 065
     Dates: start: 20220416, end: 20220420
  7. POLARAMINE [Suspect]
     Active Substance: DEXCHLORPHENIRAMINE MALEATE
     Indication: Chemotherapy side effect prophylaxis
     Dosage: 2 MILLIGRAM (2 MG ON D1, D8, D15 AND D22)
     Route: 065
     Dates: start: 20220415, end: 20220506
  8. REVLIMID [Suspect]
     Active Substance: LENALIDOMIDE
     Indication: Plasma cell myeloma
     Dosage: 25 MILLIGRAM, ONCE A DAY (25 MG/D FOR 21 CONSECUTIVE CYCLE DAYS, 28-DAY CYCLES)
     Route: 065
     Dates: start: 20220415, end: 20220505

REACTIONS (1)
  - Hepatocellular injury [Recovered/Resolved]

NARRATIVE: CASE EVENT DATE: 20220419
